FAERS Safety Report 8757524 (Version 2)
Quarter: 2014Q3

REPORT INFORMATION
  Report Type: Spontaneous
  Country: US (occurrence: US)
  Receive Date: 20120830
  Receipt Date: 20140811
  Transmission Date: 20150326
  Serious: Yes (Disabling, Other)
  Sender: FDA-Public Use
  Company Number: US-TEVA-336973USA

PATIENT
  Age: 75 Year
  Sex: Female

DRUGS (2)
  1. METOCLOPRAMIDE. [Suspect]
     Active Substance: METOCLOPRAMIDE
     Indication: GASTROOESOPHAGEAL REFLUX DISEASE
  2. METOCLOPRAMIDE. [Suspect]
     Active Substance: METOCLOPRAMIDE
     Indication: GASTROOESOPHAGEAL REFLUX DISEASE
     Dosage: 10 MILLIGRAM DAILY;
     Dates: start: 20070828, end: 20080623

REACTIONS (6)
  - Dyskinesia [Unknown]
  - Movement disorder [Unknown]
  - Akathisia [Unknown]
  - Nervous system disorder [Unknown]
  - Tardive dyskinesia [Unknown]
  - Extrapyramidal disorder [Unknown]
